FAERS Safety Report 19734012 (Version 3)
Quarter: 2021Q3

REPORT INFORMATION
  Report Type: Spontaneous
  Country: US (occurrence: US)
  Receive Date: 20210824
  Receipt Date: 20210924
  Transmission Date: 20211014
  Serious: No
  Sender: FDA-Public Use
  Company Number: US-BLUEPRINT MEDICINES CORPORATION-SP-US-2021-001261

PATIENT
  Age: 42 Year
  Sex: Female

DRUGS (1)
  1. AYVAKIT [Suspect]
     Active Substance: AVAPRITINIB
     Indication: SYSTEMIC MASTOCYTOSIS
     Route: 048
     Dates: start: 20210805, end: 20210820

REACTIONS (10)
  - Dysarthria [Unknown]
  - Feeling abnormal [Unknown]
  - Malaise [Unknown]
  - Gait disturbance [Unknown]
  - Mental impairment [Unknown]
  - Drug intolerance [Unknown]
  - Tongue discolouration [Unknown]
  - Dry mouth [Unknown]
  - Feeling drunk [Unknown]
  - Off label use [Unknown]

NARRATIVE: CASE EVENT DATE: 20210805
